FAERS Safety Report 16153444 (Version 2)
Quarter: 2019Q3

REPORT INFORMATION
  Report Type: Spontaneous
  Country: FR (occurrence: FR)
  Receive Date: 20190403
  Receipt Date: 20190923
  Transmission Date: 20191004
  Serious: Yes (Hospitalization)
  Sender: FDA-Public Use
  Company Number: FR-SUN PHARMACEUTICAL INDUSTRIES LTD-2019RR-203857

PATIENT
  Age: 52 Year
  Sex: Male

DRUGS (4)
  1. HYDROXYZINE RENAUDIN [Suspect]
     Active Substance: HYDROXYZINE HYDROCHLORIDE
     Indication: PRODUCT USED FOR UNKNOWN INDICATION
     Dosage: 50 MILLIGRAM, IN TOTAL
     Route: 042
     Dates: start: 20190224, end: 20190224
  2. REVAXIS [Suspect]
     Active Substance: DIPHTHERIA AND TETANUS TOXOIDS AND POLIOVIRUS VACCINE ANTIGENS
     Indication: IMMUNISATION
     Dosage: 1 DOSAGE FORM
     Route: 030
     Dates: start: 20190223, end: 20190223
  3. PANTOPRAZOL [Suspect]
     Active Substance: PANTOPRAZOLE SODIUM
     Indication: DUODENAL STENOSIS
     Dosage: 40 MILLIGRAM, DAILY
     Route: 042
     Dates: start: 20190224, end: 20190227
  4. PRIMPERAN [Suspect]
     Active Substance: METOCLOPRAMIDE HYDROCHLORIDE
     Indication: VOMITING
     Dosage: 20 MILLIGRAM, DAILY
     Route: 042
     Dates: start: 20190223, end: 20190223

REACTIONS (2)
  - Condition aggravated [Recovered/Resolved]
  - Acute kidney injury [Recovering/Resolving]

NARRATIVE: CASE EVENT DATE: 20190226
